FAERS Safety Report 23056705 (Version 4)
Quarter: 2023Q4

REPORT INFORMATION
  Report Type: Spontaneous
  Country: GB (occurrence: GB)
  Receive Date: 20231012
  Receipt Date: 20231202
  Transmission Date: 20240109
  Serious: Yes (Other)
  Sender: FDA-Public Use
  Company Number: GB-TAKEDA-2023TUS000116

PATIENT
  Age: 76 Year
  Sex: Male

DRUGS (1)
  1. AMOXICILLIN\CLAVULANATE POTASSIUM [Suspect]
     Active Substance: AMOXICILLIN\CLAVULANATE POTASSIUM
     Indication: Viral infection
     Dosage: UNK
     Route: 065

REACTIONS (24)
  - Pneumonia [Unknown]
  - Ear neoplasm [Unknown]
  - Musculoskeletal stiffness [Unknown]
  - Gait disturbance [Unknown]
  - Neoplasm [Unknown]
  - Post procedural discharge [Unknown]
  - Viral infection [Not Recovered/Not Resolved]
  - Infusion site haemorrhage [Unknown]
  - Rash papular [Recovering/Resolving]
  - Infusion site discharge [Unknown]
  - Somnolence [Recovering/Resolving]
  - Erythema [Unknown]
  - Infusion site bruising [Unknown]
  - Infusion site erythema [Recovered/Resolved]
  - Fatigue [Recovering/Resolving]
  - Tremor [Recovering/Resolving]
  - Body temperature increased [Recovering/Resolving]
  - Chills [Recovering/Resolving]
  - Skin squamous cell carcinoma recurrent [Unknown]
  - Metastases to salivary gland [Unknown]
  - Skin discolouration [Unknown]
  - Scab [Unknown]
  - Product leakage [Unknown]
  - Drug ineffective [Unknown]
